FAERS Safety Report 18792980 (Version 2)
Quarter: 2021Q2

REPORT INFORMATION
  Report Type: Spontaneous
  Country: US (occurrence: US)
  Receive Date: 20210127
  Receipt Date: 20210611
  Transmission Date: 20210717
  Serious: Yes (Other)
  Sender: FDA-Public Use
  Company Number: US-BEH-2021127662

PATIENT
  Age: 63 Year
  Sex: Male

DRUGS (4)
  1. IDELVION [Suspect]
     Active Substance: COAGULATION FACTOR IX RECOMBINANT HUMAN
     Indication: FACTOR IX DEFICIENCY
     Dosage: 10700 INTERNATIONAL UNIT, QOW, PRN
     Route: 042
     Dates: start: 20200701
  2. IDELVION [Suspect]
     Active Substance: COAGULATION FACTOR IX RECOMBINANT HUMAN
     Dosage: 10700 INTERNATIONAL UNIT, PRN
     Route: 042
     Dates: start: 20200701
  3. IDELVION [Suspect]
     Active Substance: COAGULATION FACTOR IX RECOMBINANT HUMAN
     Indication: FACTOR IX DEFICIENCY
     Dosage: 10700 INTERNATIONAL UNIT, QOW, PRN
     Route: 042
     Dates: start: 20200701
  4. IDELVION [Suspect]
     Active Substance: COAGULATION FACTOR IX RECOMBINANT HUMAN
     Dosage: 10700 INTERNATIONAL UNIT, PRN
     Route: 042
     Dates: start: 20200701

REACTIONS (4)
  - Traumatic haemorrhage [Recovered/Resolved]
  - Haemarthrosis [Unknown]
  - Fall [Unknown]
  - Head injury [Unknown]

NARRATIVE: CASE EVENT DATE: 20210120
